FAERS Safety Report 9392334 (Version 1)
Quarter: 2013Q3

REPORT INFORMATION
  Report Type: Spontaneous
  Country: US (occurrence: US)
  Receive Date: 20130710
  Receipt Date: 20130710
  Transmission Date: 20140515
  Serious: No
  Sender: FDA-Public Use
  Company Number: US-009507513-1307USA000756

PATIENT
  Age: 30 Year
  Sex: Female
  Weight: 126.98 kg

DRUGS (1)
  1. NEXPLANON [Suspect]
     Indication: CONTRACEPTION
     Dosage: 1 ROD, EVERY 3 YEARS
     Route: 059
     Dates: start: 20130624, end: 20130701

REACTIONS (6)
  - Skin atrophy [Unknown]
  - Device dislocation [Unknown]
  - Pain in extremity [Unknown]
  - Implant site pain [Unknown]
  - Device kink [Unknown]
  - Therapeutic procedure [Unknown]
